FAERS Safety Report 9795350 (Version 1)
Quarter: 2014Q1

REPORT INFORMATION
  Report Type: Spontaneous
  Country: GB (occurrence: GB)
  Receive Date: 20140103
  Receipt Date: 20140103
  Transmission Date: 20141002
  Serious: Yes (Hospitalization)
  Sender: FDA-Public Use
  Company Number: GB-JNJFOC-20131215316

PATIENT
  Sex: Male

DRUGS (3)
  1. CALPOL [Suspect]
     Indication: PYREXIA
     Route: 065
  2. CALPOL [Suspect]
     Indication: TOOTHACHE
     Route: 065
  3. NUROFEN [Suspect]
     Indication: PRODUCT USED FOR UNKNOWN INDICATION
     Route: 065

REACTIONS (1)
  - Respiratory disorder [Unknown]
